FAERS Safety Report 7468995-X (Version None)
Quarter: 2011Q2

REPORT INFORMATION
  Report Type: 
  Country: None (occurrence: None)
  Receive Date: 20110510
  Receipt Date: 20110502
  Transmission Date: 20111010
  Serious: Yes (Hospitalization)
  Sender: FDA-Public Use
  Company Number: US-ELI_LILLY_AND_COMPANY-US201105000945

PATIENT
  Sex: Male

DRUGS (2)
  1. HUMALOG MIX 75/25 [Suspect]
     Indication: DIABETES MELLITUS
     Dosage: 50 U, EACH MORNING
     Dates: start: 20110411
  2. HUMALOG MIX 75/25 [Suspect]
     Dosage: 40 U, EACH EVENING
     Dates: start: 20110411

REACTIONS (1)
  - GASTRIC ULCER HAEMORRHAGE [None]
